FAERS Safety Report 6745135-3 (Version None)
Quarter: 2010Q2

REPORT INFORMATION
  Report Type: 
  Country: None (occurrence: None)
  Receive Date: 20100526
  Receipt Date: 20100520
  Transmission Date: 20101027
  Serious: Yes (Hospitalization, Other)
  Sender: FDA-Public Use
  Company Number: 2010SP001139

PATIENT
  Age: 50 Year
  Sex: Female
  Weight: 84 kg

DRUGS (8)
  1. CICLESONIDE HFA [Suspect]
     Indication: RHINITIS PERENNIAL
     Dosage: 160 UG; BID; INHALATION
     Route: 055
     Dates: start: 20091016, end: 20100420
  2. PRILOSEC /00661201/ [Concomitant]
  3. MULTI-VITAMINS [Concomitant]
  4. STOOL SOFTENER [Concomitant]
  5. TRILYTE [Concomitant]
  6. HYDROCHLOROTHIAZIDE [Concomitant]
  7. VITAMIN B-12 [Concomitant]
  8. OSCAL [Concomitant]

REACTIONS (6)
  - BLOOD GLUCOSE INCREASED [None]
  - BURNING SENSATION [None]
  - HYPOAESTHESIA [None]
  - INTESTINAL OBSTRUCTION [None]
  - PARAESTHESIA [None]
  - SJOGREN'S SYNDROME [None]
